FAERS Safety Report 9571002 (Version 3)
Quarter: 2022Q4

REPORT INFORMATION
  Report Type: Report from Study
  Country: IT (occurrence: IT)
  Receive Date: 20131001
  Receipt Date: 20221018
  Transmission Date: 20230113
  Serious: Yes (Life-Threatening, Hospitalization, Disabling, Other)
  Sender: FDA-Public Use
  Company Number: IT-SHIRE-ALL1-2013-06465

PATIENT
  Age: 15 Year
  Sex: Male
  Weight: 45.5 kg

DRUGS (23)
  1. IDURSULFASE [Suspect]
     Active Substance: IDURSULFASE
     Indication: Mucopolysaccharidosis II
     Dosage: 0.5 MILLIGRAM/KILOGRAM, 1/WEEK
     Route: 041
     Dates: start: 20040116
  2. IDURSULFASE [Suspect]
     Active Substance: IDURSULFASE
     Dosage: 0.5 MILLIGRAM/KILOGRAM, 1/WEEK
     Route: 042
     Dates: start: 20070712
  3. RANITIDINE [Concomitant]
     Active Substance: RANITIDINE
     Indication: Gastrointestinal disorder
     Dosage: 7.5 MILLILITER, BID
     Route: 048
     Dates: start: 20100416
  4. RANITIDINE [Concomitant]
     Active Substance: RANITIDINE
     Dosage: UNK
     Route: 048
     Dates: start: 20100416
  5. VITAMIN D3 [Concomitant]
     Active Substance: CHOLECALCIFEROL
     Indication: Renal disorder
     Dosage: 5 MILLILITER, BID
     Route: 048
     Dates: start: 20100416
  6. VITAMIN D3 [Concomitant]
     Active Substance: CHOLECALCIFEROL
     Dosage: UNK
     Route: 048
     Dates: start: 20100416
  7. PREDNISONE [Concomitant]
     Active Substance: PREDNISONE
     Indication: Renal disorder
     Dosage: 60 MILLIGRAM, QD
     Route: 048
     Dates: start: 20100416
  8. PREDNISONE [Concomitant]
     Active Substance: PREDNISONE
     Dosage: UNK
     Route: 048
     Dates: start: 20100416, end: 20120920
  9. RAMIPRIL [Concomitant]
     Active Substance: RAMIPRIL
     Indication: Renal disorder
     Dosage: 2.5 MILLIGRAM, QD
     Route: 048
     Dates: start: 201003
  10. RAMIPRIL [Concomitant]
     Active Substance: RAMIPRIL
     Dosage: UNK
     Route: 048
     Dates: start: 201003
  11. ALBUMIN HUMAN [Concomitant]
     Active Substance: ALBUMIN HUMAN
     Indication: Oedema peripheral
     Dosage: 1000 MILLIGRAM/KILOGRAM, QD
     Route: 042
     Dates: start: 20100121
  12. ALBUMIN HUMAN [Concomitant]
     Active Substance: ALBUMIN HUMAN
     Dosage: UNK
     Route: 042
     Dates: start: 20100121
  13. FUROSEMIDE [Concomitant]
     Active Substance: FUROSEMIDE
     Indication: Oedema peripheral
     Dosage: 500 MILLIGRAM/KILOGRAM, QD
     Route: 042
     Dates: start: 20100121
  14. FUROSEMIDE [Concomitant]
     Active Substance: FUROSEMIDE
     Dosage: UNK
     Route: 042
     Dates: start: 20100121
  15. LATANOPROST [Concomitant]
     Active Substance: LATANOPROST
     Indication: Glaucoma
     Dosage: UNK
     Route: 061
     Dates: start: 20021022
  16. CYCLOSPORINE [Concomitant]
     Active Substance: CYCLOSPORINE
     Indication: Glomerulonephritis
     Dosage: UNK
     Route: 048
  17. LEVOFLOXACIN [Concomitant]
     Active Substance: LEVOFLOXACIN
     Indication: Pneumonia
     Dosage: UNK
     Route: 048
     Dates: start: 20150113
  18. METHYLPREDNISOLONE [Concomitant]
     Active Substance: METHYLPREDNISOLONE
     Indication: Respiratory distress
     Dosage: UNK
     Route: 048
     Dates: start: 20150116
  19. ESOMEPRAZOLE [Concomitant]
     Active Substance: ESOMEPRAZOLE
     Indication: Gastric disorder
     Dosage: UNK
     Route: 048
     Dates: start: 20150116
  20. ACETAMINOPHEN [Concomitant]
     Active Substance: ACETAMINOPHEN
     Indication: Pain in extremity
     Dosage: UNK
     Route: 048
     Dates: start: 20150116, end: 20150116
  21. IBUPROFEN [Concomitant]
     Active Substance: IBUPROFEN
     Indication: Pain in extremity
     Dosage: UNK
     Route: 048
     Dates: start: 20150119, end: 20150119
  22. CIPROFLOXACIN [Concomitant]
     Active Substance: CIPROFLOXACIN
     Indication: Respiratory disorder
     Dosage: UNK
     Route: 048
     Dates: start: 201508, end: 201509
  23. GENTAMICIN [Concomitant]
     Active Substance: GENTAMICIN
     Indication: Respiratory disorder
     Dosage: UNK
     Route: 048
     Dates: start: 201508, end: 201509

REACTIONS (5)
  - Spinal cord compression [Recovered/Resolved with Sequelae]
  - Dysphagia [Unknown]
  - Aspiration [Unknown]
  - Pain in extremity [Not Recovered/Not Resolved]
  - Respiratory failure [Recovered/Resolved with Sequelae]

NARRATIVE: CASE EVENT DATE: 20120920
